FAERS Safety Report 7599852-6 (Version None)
Quarter: 2011Q3

REPORT INFORMATION
  Report Type: 
  Country: None (occurrence: None)
  Receive Date: 20110706
  Receipt Date: 20110706
  Transmission Date: 20111222
  Serious: No
  Sender: FDA-Public Use
  Company Number: None

PATIENT
  Sex: Female
  Weight: 50 kg

DRUGS (2)
  1. PACLITAXEL [Suspect]
     Dosage: 261 MG
     Dates: end: 20110615
  2. TOPOTECAN [Suspect]
     Dosage: 3.36 MG
     Dates: end: 20110617

REACTIONS (4)
  - BLOOD PRESSURE DECREASED [None]
  - HAEMOGLOBIN DECREASED [None]
  - NEUTROPHIL COUNT DECREASED [None]
  - PNEUMONIA [None]
